FAERS Safety Report 24450500 (Version 2)
Quarter: 2024Q4

REPORT INFORMATION
  Report Type: Report from Study
  Country: US (occurrence: US)
  Receive Date: 20241017
  Receipt Date: 20241022
  Transmission Date: 20250115
  Serious: Yes (Other)
  Sender: NOVARTIS
  Company Number: US-002147023-NVSC2024US201560

PATIENT
  Sex: Female

DRUGS (2)
  1. LEQVIO [Suspect]
     Active Substance: INCLISIRAN SODIUM
     Indication: Product used for unknown indication
     Dosage: UNK
     Route: 058
     Dates: start: 2024
  2. LEQVIO [Suspect]
     Active Substance: INCLISIRAN SODIUM
     Dosage: UNK
     Route: 058
     Dates: start: 202408

REACTIONS (4)
  - Renal failure [Not Recovered/Not Resolved]
  - Pain in extremity [Unknown]
  - Condition aggravated [Unknown]
  - Limb discomfort [Unknown]

NARRATIVE: CASE EVENT DATE: 20240101
